FAERS Safety Report 7118962-0 (Version None)
Quarter: 2010Q4

REPORT INFORMATION
  Report Type: 
  Country: None (occurrence: None)
  Receive Date: 20101123
  Receipt Date: 20101116
  Transmission Date: 20110411
  Serious: Yes (Hospitalization, Other)
  Sender: FDA-Public Use
  Company Number: US-AMGEN-USASP2010001024

PATIENT

DRUGS (3)
  1. NPLATE [Suspect]
     Indication: IDIOPATHIC THROMBOCYTOPENIC PURPURA
     Dosage: 2 A?G/KG, UNK
     Dates: start: 20090625, end: 20090812
  2. CORTICOSTEROIDS [Concomitant]
     Dosage: UNK
     Dates: start: 20090607
  3. RITUXIMAB [Concomitant]
     Dosage: UNK
     Dates: start: 20090607

REACTIONS (4)
  - CEREBROVASCULAR ACCIDENT [None]
  - HOSPITALISATION [None]
  - MYOCARDIAL INFARCTION [None]
  - TRANSIENT ISCHAEMIC ATTACK [None]
